FAERS Safety Report 8288976-6 (Version None)
Quarter: 2012Q2

REPORT INFORMATION
  Report Type: 
  Country: None (occurrence: None)
  Receive Date: 20120417
  Receipt Date: 20120409
  Transmission Date: 20120825
  Serious: Yes (Death, Life-Threatening, Hospitalization)
  Sender: FDA-Public Use
  Company Number: JP-CELGENEUS-087-50794-11053388

PATIENT
  Sex: Male
  Weight: 62 kg

DRUGS (23)
  1. VIDAZA [Suspect]
     Dosage: 75 MILLIGRAM/SQ. METER
     Route: 041
     Dates: start: 20110801, end: 20110807
  2. VFEND [Concomitant]
     Indication: PROPHYLAXIS
     Route: 065
     Dates: end: 20120113
  3. MAGNESIUM OXIDE [Concomitant]
     Route: 065
     Dates: end: 20120113
  4. MAXIPIME [Concomitant]
     Route: 065
     Dates: start: 20110515, end: 20110518
  5. SANDOGLOBULIN [Concomitant]
     Route: 065
     Dates: start: 20110518, end: 20110520
  6. RED BLOOD CELLS [Concomitant]
     Route: 065
  7. PLATELETS [Concomitant]
     Route: 065
  8. DORIPENEM MONOHYDRATE [Concomitant]
     Route: 065
     Dates: start: 20110518, end: 20110525
  9. GRAN [Concomitant]
     Route: 065
     Dates: start: 20110516, end: 20110522
  10. VIDAZA [Suspect]
     Dosage: 75 MILLIGRAM/SQ. METER
     Route: 041
     Dates: start: 20110502, end: 20110508
  11. AMARYL [Concomitant]
     Route: 065
     Dates: end: 20110516
  12. EXJADE [Concomitant]
     Route: 065
     Dates: end: 20120113
  13. SITAGLIPTIN PHOSPHATE [Concomitant]
     Route: 065
     Dates: start: 20110419, end: 20110516
  14. VIDAZA [Suspect]
     Dosage: 75 MILLIGRAM/SQ. METER
     Route: 041
     Dates: start: 20111004, end: 20111008
  15. OMEPRAZOLE [Concomitant]
     Route: 065
     Dates: end: 20120113
  16. ALOXI [Concomitant]
     Route: 065
     Dates: start: 20110404, end: 20110502
  17. HUMULIN R [Concomitant]
     Route: 065
     Dates: start: 20110329, end: 20110620
  18. PENLEIV [Concomitant]
     Route: 065
     Dates: start: 20110518, end: 20110524
  19. VIDAZA [Suspect]
     Dosage: 75 MILLIGRAM/SQ. METER
     Route: 041
     Dates: start: 20110404, end: 20110410
  20. VIDAZA [Suspect]
     Dosage: 75 MILLIGRAM/SQ. METER
     Route: 041
     Dates: start: 20110620, end: 20110626
  21. VERAPAMIL HCL [Concomitant]
     Route: 065
     Dates: end: 20120113
  22. SOLU-CORTEF [Concomitant]
     Route: 065
     Dates: start: 20110404, end: 20110517
  23. JANUVIA [Concomitant]
     Route: 065
     Dates: start: 20110620, end: 20120113

REACTIONS (4)
  - PNEUMONIA [None]
  - WHITE BLOOD CELL COUNT DECREASED [None]
  - MYELODYSPLASTIC SYNDROME [None]
  - FEBRILE NEUTROPENIA [None]
